FAERS Safety Report 9444094 (Version 1)
Quarter: 2013Q3

REPORT INFORMATION
  Report Type: Spontaneous
  Country: US (occurrence: None)
  Receive Date: 20130806
  Receipt Date: 20130806
  Transmission Date: 20140515
  Serious: No
  Sender: FDA-Public Use
  Company Number: None

PATIENT
  Age: 75 Year
  Sex: Female
  Weight: 65.32 kg

DRUGS (4)
  1. CIPROFLOXACN [Suspect]
     Indication: DIVERTICULUM
     Dosage: 500MG - TAB 1 PILL 2 A DAY - 10 DAYS INTRAVENOUSLY 3 DAYS
     Dates: start: 20130706, end: 20130715
  2. METRONIDAZOL [Concomitant]
  3. PLIVA [Concomitant]
  4. FLAGYL [Concomitant]

REACTIONS (1)
  - Abnormal behaviour [None]
